FAERS Safety Report 19787972 (Version 1)
Quarter: 2021Q3

REPORT INFORMATION
  Report Type: Spontaneous
  Country: FR (occurrence: FR)
  Receive Date: 20210903
  Receipt Date: 20210903
  Transmission Date: 20211014
  Serious: Yes (Hospitalization, Other)
  Sender: FDA-Public Use
  Company Number: FR-BRISTOL-MYERS SQUIBB COMPANY-BMS-2021-086390

PATIENT
  Age: 76 Year
  Sex: Male

DRUGS (4)
  1. OPDIVO [Suspect]
     Active Substance: NIVOLUMAB
     Dosage: UNK
     Route: 065
     Dates: start: 20210520
  2. OPDIVO [Suspect]
     Active Substance: NIVOLUMAB
     Indication: RENAL CANCER METASTATIC
     Dosage: UNK UNK, Q2WK
     Route: 065
     Dates: end: 20210107
  3. OPDIVO [Suspect]
     Active Substance: NIVOLUMAB
     Dosage: UNK UNK, Q2WK
     Route: 065
     Dates: end: 20210422
  4. YERVOY [Suspect]
     Active Substance: IPILIMUMAB
     Indication: RENAL CANCER METASTATIC
     Dosage: UNK UNK, Q2WK
     Route: 065
     Dates: end: 20210107

REACTIONS (2)
  - Hypercalcaemia [Unknown]
  - Adrenal insufficiency [Unknown]

NARRATIVE: CASE EVENT DATE: 20210610
